FAERS Safety Report 22031098 (Version 1)
Quarter: 2023Q1

REPORT INFORMATION
  Report Type: Spontaneous
  Country: ES (occurrence: ES)
  Receive Date: 20230223
  Receipt Date: 20230223
  Transmission Date: 20230418
  Serious: Yes (Death)
  Sender: FDA-Public Use
  Company Number: ES-AEMPS-1329930

PATIENT
  Age: 83 Year
  Sex: Female

DRUGS (1)
  1. MORPHINE [Suspect]
     Active Substance: MORPHINE
     Indication: Product used for unknown indication
     Dosage: 5 MILLIGRAM, IN TOTAL
     Route: 040
     Dates: start: 20230124, end: 20230124

REACTIONS (2)
  - Respiratory depression [Fatal]
  - Wrong dose [Fatal]

NARRATIVE: CASE EVENT DATE: 20230124
